FAERS Safety Report 11395002 (Version 4)
Quarter: 2015Q4

REPORT INFORMATION
  Report Type: Spontaneous
  Country: US (occurrence: US)
  Receive Date: 20150819
  Receipt Date: 20151215
  Transmission Date: 20160304
  Serious: Yes (Hospitalization)
  Sender: FDA-Public Use
  Company Number: US-PFIZER INC-2015260417

PATIENT
  Age: 65 Year
  Sex: Female
  Weight: 92.52 kg

DRUGS (8)
  1. SUTENT [Suspect]
     Active Substance: SUNITINIB MALATE
     Indication: METASTATIC RENAL CELL CARCINOMA
     Dosage: 50 MG, CYCLIC (50 MG 28 DAYS ON/ 14 DAYS OFF)
     Dates: start: 20150727
  2. SUTENT [Suspect]
     Active Substance: SUNITINIB MALATE
     Indication: RENAL CELL CARCINOMA
     Dosage: 50 MG, 1X/DAY
     Route: 048
  3. VITAMIN D [Concomitant]
     Active Substance: CHOLECALCIFEROL
     Dosage: UNK
  4. AMPICILLIN [Concomitant]
     Active Substance: AMPICILLIN
     Indication: ACNE
     Dosage: UNK, ALTERNATE DAY (QOD)
  5. MULTIVITAMIN [Concomitant]
     Active Substance: VITAMINS
     Dosage: UNK
  6. IRON SUPPLEMENT [Concomitant]
     Active Substance: IRON
     Indication: SUPPLEMENTATION THERAPY
  7. CODEINE [Concomitant]
     Active Substance: CODEINE
     Indication: COUGH
     Dosage: UNK
  8. MIRALAX [Concomitant]
     Active Substance: POLYETHYLENE GLYCOL 3350
     Dosage: UNK

REACTIONS (9)
  - Peripheral swelling [Unknown]
  - Malaise [Unknown]
  - Alopecia [Unknown]
  - Madarosis [Unknown]
  - Feeling abnormal [Unknown]
  - Constipation [Unknown]
  - Infection [Recovered/Resolved]
  - Fatigue [Unknown]
  - Cough [Unknown]
